FAERS Safety Report 5571366-4 (Version None)
Quarter: 2007Q4

REPORT INFORMATION
  Report Type: 
  Country: None (occurrence: None)
  Receive Date: 20071221
  Receipt Date: 20070824
  Transmission Date: 20080405
  Serious: No
  Sender: FDA-Public Use
  Company Number: A0676138A

PATIENT
  Age: 51 Year
  Sex: Female

DRUGS (8)
  1. FLONASE [Suspect]
     Indication: SINUS DISORDER
     Dosage: 6PUFF SINGLE DOSE
     Route: 045
     Dates: start: 20070814, end: 20070814
  2. CELEBREX [Concomitant]
  3. SKELAXIN [Concomitant]
  4. TRAZODONE HCL [Concomitant]
  5. TRAMADOL HCL [Concomitant]
  6. SELENIUM [Concomitant]
  7. FLAX SEED OIL [Concomitant]
  8. UNKNOWN MEDICATION [Concomitant]

REACTIONS (2)
  - DRUG INEFFECTIVE [None]
  - DRUG SCREEN FALSE POSITIVE [None]
